FAERS Safety Report 20841185 (Version 2)
Quarter: 2022Q2

REPORT INFORMATION
  Report Type: Report from Study
  Country: CA (occurrence: CA)
  Receive Date: 20220517
  Receipt Date: 20220623
  Transmission Date: 20220720
  Serious: Yes (Death)
  Sender: FDA-Public Use
  Company Number: CA-BRISTOL-MYERS SQUIBB COMPANY-2022-041205

PATIENT
  Age: 79 Year
  Sex: Female
  Weight: 56.1 kg

DRUGS (13)
  1. TEMOZOLOMIDE [Suspect]
     Active Substance: TEMOZOLOMIDE
     Indication: Glioblastoma
     Dosage: FROM 21-MAR-2018 TO 25-JUL-2018 RECEIVED 150 MG/M2 QDX 5D C1 + 200 MG/M2 QDX 5D ?C2-4
     Route: 048
     Dates: start: 20180109, end: 20180220
  2. KEPPRA [Concomitant]
     Active Substance: LEVETIRACETAM
     Indication: Product used for unknown indication
     Dosage: ONGOING
     Route: 065
     Dates: start: 20171206
  3. SULFRATRIM [Concomitant]
     Indication: Product used for unknown indication
     Dosage: ONGOING
     Route: 065
     Dates: start: 20180109
  4. ATARAX [Concomitant]
     Active Substance: HYDROXYZINE HYDROCHLORIDE
     Indication: Product used for unknown indication
     Dosage: ONGOING
     Route: 065
     Dates: start: 20180307
  5. ZOFRAN [Concomitant]
     Active Substance: ONDANSETRON HYDROCHLORIDE
     Indication: Product used for unknown indication
     Dosage: ONGOING
     Route: 065
     Dates: start: 20180418
  6. SYNTHROID [Concomitant]
     Active Substance: LEVOTHYROXINE SODIUM
     Indication: Product used for unknown indication
     Dosage: ONGOING
     Route: 065
     Dates: start: 20180627
  7. NYSTATIN [Concomitant]
     Active Substance: NYSTATIN
     Indication: Product used for unknown indication
     Dosage: ONGOING; 600000 UNIT
     Route: 065
     Dates: start: 20180703
  8. TANTUM [Concomitant]
     Active Substance: BENZYDAMINE HYDROCHLORIDE
     Indication: Product used for unknown indication
     Dosage: ONGOING
     Route: 065
     Dates: start: 20180704
  9. PANTALOC [Concomitant]
     Indication: Product used for unknown indication
     Route: 065
     Dates: start: 20181024, end: 20191023
  10. DECADRON [Concomitant]
     Active Substance: DEXAMETHASONE
     Indication: Product used for unknown indication
     Route: 048
     Dates: start: 20190122, end: 20190823
  11. DECADRON [Concomitant]
     Active Substance: DEXAMETHASONE
     Route: 048
     Dates: start: 20190824, end: 20190923
  12. DECADRON [Concomitant]
     Active Substance: DEXAMETHASONE
     Route: 048
     Dates: start: 20190924, end: 20191023
  13. POLYETHYLENE GLYCOL 3350 [Concomitant]
     Active Substance: POLYETHYLENE GLYCOL 3350
     Indication: Product used for unknown indication
     Dosage: ONGOING
     Route: 065
     Dates: start: 20180530

REACTIONS (1)
  - General physical health deterioration [Fatal]

NARRATIVE: CASE EVENT DATE: 20190906
